FAERS Safety Report 21992758 (Version 1)
Quarter: 2023Q1

REPORT INFORMATION
  Report Type: Spontaneous
  Country: GB (occurrence: GB)
  Receive Date: 20230215
  Receipt Date: 20230215
  Transmission Date: 20230418
  Serious: Yes (Death, Other)
  Sender: FDA-Public Use
  Company Number: None

PATIENT
  Age: 42 Year
  Sex: Female

DRUGS (32)
  1. SIMVASTATIN [Suspect]
     Active Substance: SIMVASTATIN
     Dosage: AT BEDTIME
     Route: 048
     Dates: start: 20221220, end: 20221222
  2. INSULIN HUMAN [Concomitant]
     Active Substance: INSULIN HUMAN
     Dosage: AS PER INTRAVENOUS INSULIN REGIME (SEE COMMENTS) 50UNITS IN 50ML NACL 0.9%
     Route: 042
     Dates: start: 20221220
  3. CALCIUM CARBONATE\CHOLECALCIFEROL [Concomitant]
     Active Substance: CALCIUM CARBONATE\CHOLECALCIFEROL
     Route: 048
     Dates: start: 20221220
  4. ADIZEM [Concomitant]
     Active Substance: DILTIAZEM HYDROCHLORIDE
     Route: 048
     Dates: start: 20221220
  5. UNSPECIFIED INGREDIENT [Concomitant]
     Active Substance: UNSPECIFIED INGREDIENT
     Dosage: AS PRESCRIBED ON ARIA UNSCHEDULED NOT APPLICABLE
     Dates: start: 20221220
  6. ALFENTANIL [Concomitant]
     Active Substance: ALFENTANIL
     Route: 058
     Dates: start: 20221220
  7. DEXAMETHASONE [Concomitant]
     Active Substance: DEXAMETHASONE
     Dosage: LEFT EYE
     Dates: start: 20221220
  8. DOBUTAMINE [Concomitant]
     Active Substance: DOBUTAMINE HYDROCHLORIDE
     Dosage: CENTRAL
     Route: 042
     Dates: start: 20221221
  9. DEXTROSE [Concomitant]
     Active Substance: DEXTROSE
     Route: 042
     Dates: start: 20221220
  10. KABIVEN [Concomitant]
     Active Substance: AMINO ACIDS\ANHYDROUS DEXTROSE\CALCIUM CHLORIDE\MAGNESIUM SULFATE HEPTAHYDRATE\POTASSIUM CHLORIDE\SO
     Dosage: 2,566 ML IV FOR 1 BAG(S)
     Dates: start: 20221220, end: 20221221
  11. NOREPINEPHRINE [Concomitant]
     Active Substance: NOREPINEPHRINE
     Dosage: CENTRAL
     Route: 042
     Dates: start: 20221221
  12. PRIVIGEN [Concomitant]
     Active Substance: HUMAN IMMUNOGLOBULIN G
     Route: 042
     Dates: start: 20221221, end: 20221223
  13. HUMAN RED BLOOD CELL [Concomitant]
     Active Substance: HUMAN RED BLOOD CELL
     Dosage: ALIQUOT(S) OR UNIT(S) TO PRESCRIBED VOLU UNSCHEDULED FOR 4 DOSE(S)
     Route: 042
     Dates: start: 20221220
  14. TIMOLOL [Concomitant]
     Active Substance: TIMOLOL
     Dates: start: 20221221
  15. TRIMOVATE [Concomitant]
     Active Substance: CLOBETASONE BUTYRATE\NYSTATIN\OXYTETRACYCLINE CALCIUM
     Dosage: 1 APPLICATION(S)
     Route: 061
     Dates: start: 20221220
  16. AMOXICILLIN [Concomitant]
     Active Substance: AMOXICILLIN
     Indication: Lower respiratory tract infection
     Route: 048
     Dates: start: 20221220
  17. APIXABAN. [Concomitant]
     Indication: Atrial fibrillation
     Route: 048
     Dates: start: 20221220
  18. CLONAZEPAM [Concomitant]
     Active Substance: CLONAZEPAM
     Dosage: AT BEDTIME
     Route: 048
     Dates: start: 20221220
  19. DIAZEPAM [Concomitant]
     Active Substance: DIAZEPAM
     Dosage: AT BEDTIME
     Route: 048
     Dates: start: 20221220, end: 20221221
  20. DIAZEPAM [Concomitant]
     Active Substance: DIAZEPAM
     Dosage: AT BEDTIME
     Route: 048
     Dates: start: 20221221
  21. ENOXAPARIN [Concomitant]
     Active Substance: ENOXAPARIN
     Indication: Embolism venous
     Dosage: EVERY EVENING AT 6PM
     Route: 058
     Dates: start: 20221220
  22. IBUPROFEN [Concomitant]
     Active Substance: IBUPROFEN
     Route: 048
     Dates: start: 20221220
  23. IMMUNOGLOBULIN [Concomitant]
     Route: 042
     Dates: start: 20221221, end: 20221224
  24. LEVOBUPIVACAINE [Concomitant]
     Active Substance: LEVOBUPIVACAINE
     Route: 008
     Dates: start: 20221220
  25. METFORMIN [Concomitant]
     Active Substance: METFORMIN HYDROCHLORIDE
     Dosage: AT 8AM AND 6PM
     Route: 048
     Dates: start: 20221221
  26. METFORMIN [Concomitant]
     Active Substance: METFORMIN HYDROCHLORIDE
     Dosage: AT MIDDAY
     Route: 048
     Dates: start: 20221221
  27. MORPHINE SULFATE [Concomitant]
     Active Substance: MORPHINE SULFATE
     Route: 042
     Dates: start: 20221220
  28. OXYGEN [Concomitant]
     Active Substance: OXYGEN
     Dosage: 100 L/MIN
     Route: 055
     Dates: start: 20221220
  29. PREDNISOLONE [Concomitant]
     Active Substance: PREDNISOLONE
     Dosage: EVERY MORNING
     Route: 048
     Dates: start: 20221222, end: 20221223
  30. ALBUTEROL [Concomitant]
     Active Substance: ALBUTEROL
     Route: 042
     Dates: start: 20221221
  31. VALPROATE SODIUM [Concomitant]
     Active Substance: VALPROATE SODIUM
     Route: 048
     Dates: start: 20221220
  32. INSULIN HUMAN [Concomitant]
     Active Substance: INSULIN HUMAN
     Dosage: REFER TO STRUCTURED NOTES FOR REGIMEN UNSCHEDULED?100 UNITS/ML
     Route: 058
     Dates: start: 20221220, end: 20221221

REACTIONS (2)
  - Death [Fatal]
  - Myalgia [Not Recovered/Not Resolved]
